FAERS Safety Report 14321868 (Version 1)
Quarter: 2017Q4

REPORT INFORMATION
  Report Type: Report from Study
  Country: BR (occurrence: BR)
  Receive Date: 20171225
  Receipt Date: 20171225
  Transmission Date: 20180321
  Serious: Yes (Other)
  Sender: FDA-Public Use
  Company Number: BR-ROCHE-2042512

PATIENT

DRUGS (4)
  1. SOFOSBUVIR [Suspect]
     Active Substance: SOFOSBUVIR
     Indication: CHRONIC HEPATITIS C
     Route: 065
  2. DACLATASVIR. [Suspect]
     Active Substance: DACLATASVIR
     Indication: CHRONIC HEPATITIS C
     Route: 065
  3. SIMEPREVIR [Suspect]
     Active Substance: SIMEPREVIR
     Indication: CHRONIC HEPATITIS C
     Route: 065
  4. RIBAVIRIN. [Suspect]
     Active Substance: RIBAVIRIN
     Indication: CHRONIC HEPATITIS C
     Dosage: DOSE:13-15 MG/KG
     Route: 065

REACTIONS (17)
  - Acute kidney injury [Unknown]
  - Urinary tract infection [Unknown]
  - Pain in extremity [Unknown]
  - Treatment failure [Unknown]
  - Headache [Unknown]
  - Haemoglobin decreased [Unknown]
  - Insomnia [Unknown]
  - Abdominal pain [Unknown]
  - Decreased appetite [Unknown]
  - Pruritus [Unknown]
  - Leukopenia [Unknown]
  - Depression [Unknown]
  - Somnolence [Unknown]
  - Fatigue [Unknown]
  - Dizziness [Unknown]
  - Diarrhoea [Unknown]
  - Rash [Unknown]
